FAERS Safety Report 14640110 (Version 1)
Quarter: 2018Q1

REPORT INFORMATION
  Report Type: Spontaneous
  Country: US (occurrence: US)
  Receive Date: 20180315
  Receipt Date: 20180315
  Transmission Date: 20180509
  Serious: No
  Sender: FDA-Public Use
  Company Number: US-BIOFRONTERA-000452

PATIENT
  Age: 22 Year
  Sex: Female

DRUGS (1)
  1. AMELUZ [Suspect]
     Active Substance: AMINOLEVULINIC ACID HYDROCHLORIDE
     Indication: ACNE
     Route: 061
     Dates: start: 20171228, end: 20171228

REACTIONS (4)
  - Off label use [Recovered/Resolved]
  - Application site discolouration [Not Recovered/Not Resolved]
  - Oedema [Unknown]
  - Erythema [Unknown]

NARRATIVE: CASE EVENT DATE: 201801
